FAERS Safety Report 21904162 (Version 1)
Quarter: 2023Q1

REPORT INFORMATION
  Report Type: Spontaneous
  Country: US (occurrence: None)
  Receive Date: 20230123
  Receipt Date: 20230123
  Transmission Date: 20230418
  Serious: Yes (Hospitalization)
  Sender: FDA-Public Use
  Company Number: None

PATIENT
  Age: 20 Year
  Sex: Male
  Weight: 91.63 kg

DRUGS (29)
  1. PROMACTA [Suspect]
     Active Substance: ELTROMBOPAG OLAMINE
     Indication: Non-Hodgkin^s lymphoma
     Dosage: FREQUENCY : DAILY;?
     Route: 048
  2. ACETAMINOPHEN [Concomitant]
     Active Substance: ACETAMINOPHEN
  3. ACYCLOVIR [Concomitant]
     Active Substance: ACYCLOVIR
  4. ALLOPURINOL [Concomitant]
     Active Substance: ALLOPURINOL
  5. CYCLOBENZAPRINE [Concomitant]
     Active Substance: CYCLOBENZAPRINE
  6. DECADRON [Concomitant]
     Active Substance: DEXAMETHASONE
  7. DOXYCYCLINE [Concomitant]
     Active Substance: DOXYCYCLINE
  8. FLUZONE-HIGH DOSE [Concomitant]
  9. GLUCOSE ABDOJECT [Concomitant]
  10. HYDROMORPHONE [Concomitant]
     Active Substance: HYDROMORPHONE
  11. HYPOGLYCEMIA [Concomitant]
  12. IBUPROFEN [Concomitant]
     Active Substance: IBUPROFEN
  13. KETOROLAC [Concomitant]
     Active Substance: KETOROLAC TROMETHAMINE
  14. LACTULOSE [Concomitant]
     Active Substance: LACTULOSE
  15. LOVENOX [Concomitant]
     Active Substance: ENOXAPARIN SODIUM
  16. MAGNESIUM SULFATE [Concomitant]
     Active Substance: MAGNESIUM SULFATE
  17. MEDROL [Concomitant]
     Active Substance: METHYLPREDNISOLONE
  18. MORPHINE [Concomitant]
     Active Substance: MORPHINE
  19. NORCO [Concomitant]
     Active Substance: ACETAMINOPHEN\HYDROCODONE BITARTRATE
  20. OSELTAMIVIR [Concomitant]
     Active Substance: OSELTAMIVIR
  21. PANTOPRAZOLE [Concomitant]
     Active Substance: PANTOPRAZOLE
  22. PIPERACILIN [Concomitant]
  23. POLYETHYLENE GLYCOL [Concomitant]
     Active Substance: POLYETHYLENE GLYCOL
  24. DOCUSATE SODIUM\SENNOSIDES [Concomitant]
     Active Substance: DOCUSATE SODIUM\SENNOSIDES
  25. SIMETHICONE (DIMETHICONE) [Concomitant]
     Active Substance: DIMETHICONE
  26. SODIUM CHLORIDE [Concomitant]
     Active Substance: SODIUM CHLORIDE
  27. TRAMADOL [Concomitant]
     Active Substance: TRAMADOL
  28. VANCOMYCIN [Concomitant]
     Active Substance: VANCOMYCIN
  29. ZOFRAN [Concomitant]
     Active Substance: ONDANSETRON HYDROCHLORIDE

REACTIONS (1)
  - Hospitalisation [None]
